FAERS Safety Report 22918448 (Version 2)
Quarter: 2023Q4

REPORT INFORMATION
  Report Type: Other
  Country: US (occurrence: US)
  Receive Date: 20230907
  Receipt Date: 20231116
  Transmission Date: 20240110
  Serious: No
  Sender: FDA-Public Use
  Company Number: US-TRAVERE-2023TVT00303

PATIENT
  Sex: Female

DRUGS (4)
  1. FILSPARI [Suspect]
     Active Substance: SPARSENTAN
     Indication: Proteinuria
     Route: 048
     Dates: start: 20230519
  2. FARXIGA [Concomitant]
     Active Substance: DAPAGLIFLOZIN PROPANEDIOL
  3. IRON [Concomitant]
     Active Substance: IRON
  4. Vitamin D-400 [Concomitant]

REACTIONS (3)
  - Dizziness [Unknown]
  - Visual impairment [Unknown]
  - Product use in unapproved indication [Unknown]
